FAERS Safety Report 5216364-5 (Version None)
Quarter: 2007Q1

REPORT INFORMATION
  Report Type: 
  Country: None (occurrence: None)
  Receive Date: 20061124
  Receipt Date: 20060801
  Transmission Date: 20070707
  Serious: Yes (Other)
  Sender: FDA-Public Use
  Company Number: WAES 0608USA00720

PATIENT
  Age: 36 Year
  Sex: Male

DRUGS (1)
  1. VYTORIN [Suspect]
     Indication: LOW DENSITY LIPOPROTEIN INCREASED
     Dosage: 10-20 MG/DAILY/PO; 10-40 MG/DAILY/PO;  10-40 MG/DAILY/ PO;  10-80 MG/DAILY/PO
     Route: 048

REACTIONS (1)
  - MYALGIA [None]
